FAERS Safety Report 19459210 (Version 1)
Quarter: 2021Q2

REPORT INFORMATION
  Report Type: Spontaneous
  Country: US (occurrence: US)
  Receive Date: 20210625
  Receipt Date: 20210625
  Transmission Date: 20210717
  Serious: No
  Sender: FDA-Public Use
  Company Number: None

PATIENT
  Age: 48 Year
  Sex: Male

DRUGS (1)
  1. COSENTYX [Suspect]
     Active Substance: SECUKINUMAB
     Indication: ANKYLOSING SPONDYLITIS
     Dosage: INJECT 300MG (2 PENS) SUBCUTANEOUSLY EVERY 4  WEEKS FOR 5  WEEKS AS DIRECTED
     Route: 057
     Dates: start: 202010

REACTIONS (1)
  - Nasopharyngitis [None]
